FAERS Safety Report 12206672 (Version 1)
Quarter: 2016Q1

REPORT INFORMATION
  Report Type: Spontaneous
  Country: US (occurrence: None)
  Receive Date: 20160323
  Receipt Date: 20160323
  Transmission Date: 20160526
  Serious: Yes (Hospitalization)
  Sender: FDA-Public Use
  Company Number: None

PATIENT
  Age: 19 Year
  Sex: Male

DRUGS (10)
  1. ERYTHRO [Concomitant]
     Active Substance: ERYTHROMYCIN
  2. ALBUTEROL. [Concomitant]
     Active Substance: ALBUTEROL
  3. VENTOLIN HFA [Concomitant]
     Active Substance: ALBUTEROL SULFATE
  4. NOVOLOG [Concomitant]
     Active Substance: INSULIN ASPART
  5. TOBRAMYCIN 300MG/5ML AKORN [Suspect]
     Active Substance: TOBRAMYCIN
     Route: 055
  6. LANSOPRAZOLE. [Concomitant]
     Active Substance: LANSOPRAZOLE
  7. AZITHROMYCIN ANHYDROUS. [Concomitant]
     Active Substance: AZITHROMYCIN ANHYDROUS
  8. COMPLETE FORMULATION MVI [Concomitant]
  9. FEXOFENADINE [Concomitant]
     Active Substance: FEXOFENADINE\FEXOFENADINE HYDROCHLORIDE
  10. MEPHYTON [Concomitant]
     Active Substance: PHYTONADIONE

REACTIONS (3)
  - Staphylococcal infection [None]
  - Disease complication [None]
  - Cystic fibrosis [None]

NARRATIVE: CASE EVENT DATE: 20160311
